FAERS Safety Report 13473983 (Version 2)
Quarter: 2017Q3

REPORT INFORMATION
  Report Type: Spontaneous
  Country: JP (occurrence: JP)
  Receive Date: 20170424
  Receipt Date: 20170718
  Transmission Date: 20171127
  Serious: Yes (Hospitalization)
  Sender: FDA-Public Use
  Company Number: JP-UCBSA-2017014835

PATIENT
  Age: 9 Decade
  Sex: Female

DRUGS (3)
  1. NEUPRO [Suspect]
     Active Substance: ROTIGOTINE
     Indication: PRODUCT USED FOR UNKNOWN INDICATION
     Dosage: 2 MG, ONCE DAILY (QD)
     Route: 062
  2. NEUPRO [Suspect]
     Active Substance: ROTIGOTINE
     Dosage: UNK (WEARING 4 TO 5 SHEETS OF 2 MG STRENGTH (4.5 MG)
     Route: 062
  3. NEUPRO [Suspect]
     Active Substance: ROTIGOTINE
     Dosage: 1 DF, ONCE DAILY (QD) (STRENGTH: 2 MG)
     Route: 062

REACTIONS (4)
  - Movement disorder [Unknown]
  - Wrong technique in product usage process [Unknown]
  - Pyrexia [Unknown]
  - Restlessness [Unknown]
